FAERS Safety Report 17111135 (Version 1)
Quarter: 2019Q4

REPORT INFORMATION
  Report Type: Spontaneous
  Country: FR (occurrence: FR)
  Receive Date: 20191204
  Receipt Date: 20191204
  Transmission Date: 20200122
  Serious: Yes (Death)
  Sender: FDA-Public Use
  Company Number: FR-MYLANLABS-2019M1117240

PATIENT
  Age: 55 Year
  Sex: Male
  Weight: 58 kg

DRUGS (3)
  1. CISPLATIN. [Suspect]
     Active Substance: CISPLATIN
     Indication: SEMINOMA
     Dosage: 100 MILLIGRAM/SQ. METER, MONTHLY
     Route: 042
     Dates: start: 200002, end: 200004
  2. ETOPOSIDE. [Suspect]
     Active Substance: ETOPOSIDE
     Indication: SEMINOMA
     Dosage: 500 MILLIGRAM/SQ. METER, MONTHLY
     Route: 042
     Dates: start: 200002, end: 200004
  3. BLEOMYCINE                         /00183901/ [Suspect]
     Active Substance: BLEOMYCIN SULFATE
     Indication: SEMINOMA
     Dosage: 30 MILLIGRAM, QW
     Route: 042
     Dates: start: 200002, end: 200004

REACTIONS (1)
  - Sarcoma [Fatal]

NARRATIVE: CASE EVENT DATE: 201803
